FAERS Safety Report 22317265 (Version 2)
Quarter: 2023Q2

REPORT INFORMATION
  Report Type: Spontaneous
  Country: US (occurrence: US)
  Receive Date: 20230515
  Receipt Date: 20230529
  Transmission Date: 20230722
  Serious: Yes (Other)
  Sender: FDA-Public Use
  Company Number: US-NATCOUSA-2023-NATCOUSA-000147

PATIENT
  Age: 76 Year
  Sex: Female
  Weight: 64.4 kg

DRUGS (2)
  1. LETROZOLE [Suspect]
     Active Substance: LETROZOLE
     Indication: HER2 positive breast cancer
     Dosage: 2.5MG ONCE DAILY BY MOUTH.
     Route: 048
     Dates: start: 202302
  2. IBRANCE [Suspect]
     Active Substance: PALBOCICLIB
     Indication: HER2 positive breast cancer
     Dosage: 1 TABLET DAILY BY MOUTH FOR 21 DAYS AND THEN OFF FOR 7 DAYS.
     Route: 048

REACTIONS (8)
  - Dyspnoea [Recovering/Resolving]
  - Wheezing [Unknown]
  - Oxygen saturation decreased [Unknown]
  - Dyspnoea [Unknown]
  - Blood pressure decreased [Unknown]
  - Drug ineffective [Unknown]
  - Pulmonary oedema [Not Recovered/Not Resolved]
  - Off label use [Unknown]
